FAERS Safety Report 5220963-4 (Version None)
Quarter: 2007Q1

REPORT INFORMATION
  Report Type: 
  Country: None (occurrence: None)
  Receive Date: 20070126
  Receipt Date: 20070119
  Transmission Date: 20070707
  Serious: Yes (Other)
  Sender: FDA-Public Use
  Company Number: 2007UW01371

PATIENT
  Age: 45 Year
  Sex: Female
  Weight: 70 kg

DRUGS (1)
  1. ZOLADEX [Suspect]
     Indication: ENDOMETRIOSIS
     Route: 058
     Dates: start: 20061129

REACTIONS (17)
  - APPLICATION SITE BLEEDING [None]
  - ASTHENIA [None]
  - BLOOD PRESSURE FLUCTUATION [None]
  - BONE PAIN [None]
  - DIZZINESS [None]
  - DYSPNOEA [None]
  - EYE IRRITATION [None]
  - FATIGUE [None]
  - HEADACHE [None]
  - HIRSUTISM [None]
  - HOT FLUSH [None]
  - INSOMNIA [None]
  - LYMPHADENOPATHY [None]
  - NASAL MUCOSAL DISORDER [None]
  - NAUSEA [None]
  - PAIN [None]
  - PHARYNGOLARYNGEAL PAIN [None]
